FAERS Safety Report 9608564 (Version 3)
Quarter: 2013Q4

REPORT INFORMATION
  Report Type: Spontaneous
  Country: TR (occurrence: TR)
  Receive Date: 20131009
  Receipt Date: 20131029
  Transmission Date: 20140711
  Serious: Yes (Hospitalization)
  Sender: FDA-Public Use
  Company Number: TR-PFIZER INC-2013279240

PATIENT
  Age: 35 Year
  Sex: Female
  Weight: 93 kg

DRUGS (3)
  1. FLUCANAZOLE [Suspect]
     Indication: PRURITUS
     Dosage: UNK
     Dates: start: 20130920
  2. NOVORAPID [Concomitant]
     Indication: DIABETES MELLITUS
     Dosage: 16 MG, 3X/DAY
  3. LEVEMIR [Concomitant]
     Indication: DIABETES MELLITUS
     Dosage: 72 MG, 4X/DAY

REACTIONS (4)
  - Suspected counterfeit product [Recovering/Resolving]
  - Anaphylactic reaction [Recovered/Resolved]
  - Weight decreased [Recovering/Resolving]
  - Blood glucose decreased [Recovering/Resolving]
